FAERS Safety Report 8420181-2 (Version None)
Quarter: 2012Q2

REPORT INFORMATION
  Report Type: 
  Country: None (occurrence: None)
  Receive Date: 20120607
  Receipt Date: 20120530
  Transmission Date: 20120825
  Serious: Yes (Other)
  Sender: FDA-Public Use
  Company Number: US-US-EMD SERONO, INC.-7026773

PATIENT
  Sex: Female

DRUGS (5)
  1. REBIF [Suspect]
     Indication: RELAPSING-REMITTING MULTIPLE SCLEROSIS
     Route: 058
     Dates: start: 20100620
  2. TEGRETOL [Concomitant]
     Route: 048
  3. GABAPENTIN [Concomitant]
     Indication: POLYNEUROPATHY
     Dates: start: 20100601
  4. TEGRETOL [Concomitant]
     Indication: EPILEPSY
     Route: 048
     Dates: start: 19910101
  5. BACLOFEN [Concomitant]
     Indication: MUSCLE SPASTICITY
     Dates: start: 20050701

REACTIONS (5)
  - GRAND MAL CONVULSION [None]
  - INJECTION SITE ERYTHEMA [None]
  - BURSITIS [None]
  - HEPATIC ENZYME ABNORMAL [None]
  - INJECTION SITE PAIN [None]
